FAERS Safety Report 11852951 (Version 1)
Quarter: 2015Q4

REPORT INFORMATION
  Report Type: Spontaneous
  Country: US (occurrence: US)
  Receive Date: 20151218
  Receipt Date: 20151218
  Transmission Date: 20160305
  Serious: No
  Sender: FDA-Public Use
  Company Number: US-ELI_LILLY_AND_COMPANY-US201512005212

PATIENT
  Age: 59 Year
  Sex: Male

DRUGS (4)
  1. TRULICITY [Suspect]
     Active Substance: DULAGLUTIDE
     Indication: TYPE 2 DIABETES MELLITUS
     Dosage: UNK, UNKNOWN
     Route: 065
     Dates: start: 20150915
  2. INSULIN [Concomitant]
     Active Substance: INSULIN NOS
     Dosage: UNK, UNKNOWN
     Route: 065
  3. METFORMIN [Concomitant]
     Active Substance: METFORMIN HYDROCHLORIDE
     Dosage: UNK, UNKNOWN
     Route: 065
  4. GLYBURIDE. [Concomitant]
     Active Substance: GLYBURIDE
     Dosage: UNK, UNKNOWN
     Route: 065

REACTIONS (1)
  - High density lipoprotein decreased [Unknown]
